FAERS Safety Report 6470578-5 (Version None)
Quarter: 2009Q4

REPORT INFORMATION
  Report Type: 
  Country: None (occurrence: None)
  Receive Date: 20091203
  Receipt Date: 20091008
  Transmission Date: 20100525
  Serious: No
  Sender: FDA-Public Use
  Company Number: US-ABBOTT-09P-163-0602309-00

PATIENT
  Sex: Female
  Weight: 76.726 kg

DRUGS (6)
  1. MERIDIA [Suspect]
     Indication: WEIGHT DECREASED
     Dates: start: 20090601, end: 20090601
  2. MERIDIA [Suspect]
     Dates: start: 20090924
  3. LEVOTHYROXINE SODIUM [Concomitant]
     Indication: HYPOTHYROIDISM
  4. VITAMIN TAB [Concomitant]
     Indication: DRUG USE FOR UNKNOWN INDICATION
  5. APPLE CIDAR VINEGAR [Concomitant]
     Indication: WEIGHT DECREASED
  6. APPLE CIDAR VINEGAR [Concomitant]
     Indication: HYPERSENSITIVITY

REACTIONS (9)
  - ASTHENIA [None]
  - CONFUSIONAL STATE [None]
  - DIZZINESS [None]
  - FEELING ABNORMAL [None]
  - HYPOAESTHESIA [None]
  - HYPOAESTHESIA FACIAL [None]
  - PALPITATIONS [None]
  - PANIC ATTACK [None]
  - VISUAL IMPAIRMENT [None]
